FAERS Safety Report 19669613 (Version 3)
Quarter: 2021Q3

REPORT INFORMATION
  Report Type: Report from Study
  Country: US (occurrence: US)
  Receive Date: 20210806
  Receipt Date: 20210902
  Transmission Date: 20211014
  Serious: No
  Sender: FDA-Public Use
  Company Number: NVSC2021US174506

PATIENT
  Sex: Male

DRUGS (1)
  1. ENTRESTO [Suspect]
     Active Substance: SACUBITRIL\VALSARTAN
     Indication: PRODUCT USED FOR UNKNOWN INDICATION
     Dosage: 200 MG (97/103 MG), UNKNOWN
     Route: 048

REACTIONS (6)
  - Stress [Unknown]
  - Fatigue [Unknown]
  - Weight decreased [Unknown]
  - Mobility decreased [Unknown]
  - Blood pressure increased [Unknown]
  - Anxiety [Unknown]
